FAERS Safety Report 23097326 (Version 1)
Quarter: 2023Q4

REPORT INFORMATION
  Report Type: Spontaneous
  Country: CH (occurrence: CH)
  Receive Date: 20231023
  Receipt Date: 20231023
  Transmission Date: 20240110
  Serious: Yes (Hospitalization)
  Sender: FDA-Public Use
  Company Number: CH-ROCHE-3438117

PATIENT
  Sex: Female
  Weight: 55 kg

DRUGS (10)
  1. VALIUM [Suspect]
     Active Substance: DIAZEPAM
     Indication: Sleep disorder
     Dosage: DURATION: ^2 YEARS, OR MORE^ (DRUG WITHDRAWN)
     Route: 065
  2. MIDAZOLAM [Suspect]
     Active Substance: MIDAZOLAM
     Indication: Product used for unknown indication
     Route: 065
  3. QUETIAPINE [Suspect]
     Active Substance: QUETIAPINE
     Indication: Product used for unknown indication
     Route: 065
  4. XANAX [Suspect]
     Active Substance: ALPRAZOLAM
     Indication: Product used for unknown indication
     Dosage: DRUG WITHDRAWN
     Route: 065
  5. RISPERDAL [Suspect]
     Active Substance: RISPERIDONE
     Indication: Product used for unknown indication
     Dosage: DRUG WITHDRAWN
     Route: 065
  6. ZOLPIDEM TARTRATE [Suspect]
     Active Substance: ZOLPIDEM TARTRATE
     Indication: Product used for unknown indication
     Dosage: DURATION: ^MANY YEARS^ (DRUG WITHDRAWN)
     Route: 065
  7. TRAZODONE HYDROCHLORIDE [Suspect]
     Active Substance: TRAZODONE HYDROCHLORIDE
     Indication: Product used for unknown indication
     Dosage: DRUG WITHDRAWN
     Route: 065
  8. REMERON [Suspect]
     Active Substance: MIRTAZAPINE
     Indication: Product used for unknown indication
     Dosage: DRUG WITHDRAWN
     Route: 065
  9. LORAZEPAM [Suspect]
     Active Substance: LORAZEPAM
     Indication: Sleep disorder
     Dosage: 7 DF DAILY (7 TABLETS (EXPIDET) PER DAY); START: 6 YEARS AGO
     Route: 065
  10. LORAZEPAM [Suspect]
     Active Substance: LORAZEPAM
     Indication: Fear

REACTIONS (21)
  - Confusional state [Unknown]
  - Myalgia [Unknown]
  - Dizziness [Unknown]
  - Decreased appetite [Unknown]
  - Anger [Unknown]
  - Aggression [Unknown]
  - Dyspepsia [Unknown]
  - Atonic urinary bladder [Unknown]
  - Headache [Unknown]
  - Bone pain [Unknown]
  - Visual impairment [Unknown]
  - Disorientation [Unknown]
  - Social fear [Unknown]
  - Hypersensitivity [Unknown]
  - Fatigue [Unknown]
  - Asthenia [Unknown]
  - Dyspnoea [Unknown]
  - Suicidal ideation [Unknown]
  - Amnesia [Unknown]
  - Fall [Unknown]
  - Depersonalisation/derealisation disorder [Unknown]
